FAERS Safety Report 5530610-X (Version None)
Quarter: 2007Q4

REPORT INFORMATION
  Report Type: 
  Country: None (occurrence: None)
  Receive Date: 20071128
  Receipt Date: 20071128
  Transmission Date: 20080405
  Serious: Yes (Death)
  Sender: FDA-Public Use
  Company Number: None

PATIENT
  Age: 54 Year
  Sex: Male
  Weight: 97 kg

DRUGS (3)
  1. ONTAK [Suspect]
     Indication: T-CELL LYMPHOMA
     Dosage: 18MCG/KG = 1746 MCG IV QD X 4 DAYS
     Dates: start: 20070417
  2. ONTAK [Suspect]
     Indication: T-CELL LYMPHOMA
     Dosage: 18MCG/KG = 1746 MCG IV QD X 4 DAYS
     Dates: start: 20070418
  3. ONTAK [Suspect]
     Indication: T-CELL LYMPHOMA
     Dosage: 18MCG/KG = 1746 MCG IV QD X 4 DAYS
     Dates: start: 20070419

REACTIONS (8)
  - CAPILLARY LEAK SYNDROME [None]
  - DIZZINESS [None]
  - METABOLIC ACIDOSIS [None]
  - MULTI-ORGAN FAILURE [None]
  - RESPIRATORY FAILURE [None]
  - SHOCK [None]
  - SYNCOPE [None]
  - SYSTEMIC INFLAMMATORY RESPONSE SYNDROME [None]
